FAERS Safety Report 16053587 (Version 2)
Quarter: 2019Q1

REPORT INFORMATION
  Report Type: Report from Study
  Country: PH (occurrence: PH)
  Receive Date: 20190308
  Receipt Date: 20190312
  Transmission Date: 20190418
  Serious: Yes (Death, Hospitalization, Other)
  Sender: FDA-Public Use
  Company Number: PH-TAKEDA-2019TUS011971

PATIENT
  Sex: Male

DRUGS (2)
  1. BORTEZOMIB. [Suspect]
     Active Substance: BORTEZOMIB
     Indication: PLASMA CELL MYELOMA
     Dosage: 3.5 MILLIGRAM
     Route: 065
     Dates: start: 20180831
  2. BORTEZOMIB. [Suspect]
     Active Substance: BORTEZOMIB
     Dosage: 3.5 MILLIGRAM
     Route: 065
     Dates: start: 20181205

REACTIONS (2)
  - Myocardial infarction [Fatal]
  - Dyspnoea [Unknown]

NARRATIVE: CASE EVENT DATE: 20181210
